FAERS Safety Report 4541874-3 (Version None)
Quarter: 2004Q4

REPORT INFORMATION
  Report Type: 
  Country: None (occurrence: None)
  Receive Date: 20041230
  Receipt Date: 20041227
  Transmission Date: 20050328
  Serious: Yes (Hospitalization)
  Sender: FDA-Public Use
  Company Number: PHRM2004FR03767

PATIENT
  Age: 90 Year
  Sex: Female

DRUGS (1)
  1. TEGRETOL [Suspect]
     Indication: FACIAL NEURALGIA
     Dosage: 600 TO 800 MG PER DAY
     Route: 048

REACTIONS (5)
  - DEPRESSED LEVEL OF CONSCIOUSNESS [None]
  - DIZZINESS [None]
  - DRUG LEVEL INCREASED [None]
  - HEADACHE [None]
  - VOMITING [None]
